FAERS Safety Report 5348543-0 (Version None)
Quarter: 2007Q2

REPORT INFORMATION
  Report Type: 
  Country: None (occurrence: None)
  Receive Date: 20070606
  Receipt Date: 20070529
  Transmission Date: 20071010
  Serious: Yes (Other)
  Sender: FDA-Public Use
  Company Number: ES-PFIZER INC-2007043689

PATIENT
  Age: 50 Year
  Sex: Male

DRUGS (3)
  1. LYRICA [Suspect]
     Indication: PERIPHERAL COLDNESS
     Route: 048
  2. LYRICA [Suspect]
     Indication: PARAESTHESIA
  3. DITROPAN [Concomitant]
     Route: 048

REACTIONS (4)
  - BLOOD GLUCOSE INCREASED [None]
  - DRUG INEFFECTIVE [None]
  - LYMPHOCYTE COUNT DECREASED [None]
  - URINARY INCONTINENCE [None]
